FAERS Safety Report 5701935-X (Version None)
Quarter: 2008Q2

REPORT INFORMATION
  Report Type: 
  Country: None (occurrence: None)
  Receive Date: 20080411
  Receipt Date: 20080402
  Transmission Date: 20081010
  Serious: Yes (Hospitalization, Other)
  Sender: FDA-Public Use
  Company Number: PHHY2008CA04569

PATIENT
  Age: 37 Year
  Sex: Male

DRUGS (15)
  1. EFFEXOR XR [Concomitant]
     Dosage: 300 MG, QD
     Dates: end: 20080212
  2. ZYPREXA [Concomitant]
     Dosage: 15 MG, QHS
     Dates: start: 20080217, end: 20080226
  3. ZYPREXA [Concomitant]
     Dosage: 10 MG, QHS
  4. DEXEDINE [Concomitant]
  5. COLACE [Concomitant]
  6. NICOTINE [Concomitant]
     Dates: start: 20080306
  7. CLOZARIL [Suspect]
     Indication: SCHIZOPHRENIA
     Dosage: 100 MG, QHS
     Route: 048
     Dates: end: 20080217
  8. CLOZARIL [Suspect]
     Dosage: 150 MG, QHS
     Dates: start: 20080219
  9. CLOZARIL [Suspect]
     Dosage: 175 MG, QHS
     Dates: start: 20080222
  10. CLOZARIL [Suspect]
     Dosage: 125 MG, QHS
     Dates: start: 20080217
  11. CLOZARIL [Suspect]
     Dosage: 200 MG, QHS
     Dates: start: 20080224
  12. CLOZARIL [Suspect]
     Dosage: 250 MG, QHS
     Dates: start: 20080226
  13. CLOZARIL [Suspect]
     Dosage: 300 MG, QHS
     Dates: start: 20080227
  14. CLOZARIL [Suspect]
     Dosage: 350 MG, QHS
     Dates: start: 20080311, end: 20080325
  15. WELLSUTIN [Concomitant]

REACTIONS (9)
  - BLOOD PRESSURE DECREASED [None]
  - DRUG LEVEL DECREASED [None]
  - GASTROINTESTINAL CANDIDIASIS [None]
  - HEART RATE INCREASED [None]
  - HYPOTENSION [None]
  - PAIN IN EXTREMITY [None]
  - PSYCHOTIC DISORDER [None]
  - TACHYCARDIA [None]
  - WRIST FRACTURE [None]
